FAERS Safety Report 17726377 (Version 1)
Quarter: 2020Q2

REPORT INFORMATION
  Report Type: Spontaneous
  Country: US (occurrence: US)
  Receive Date: 20200430
  Receipt Date: 20200430
  Transmission Date: 20200714
  Serious: Yes (Death, Hospitalization, Other)
  Sender: FDA-Public Use
  Company Number: US-AMGEN-USASP2020068612

PATIENT
  Age: 78 Year
  Sex: Female
  Weight: 44.44 kg

DRUGS (1)
  1. PROLIA [Suspect]
     Active Substance: DENOSUMAB
     Indication: OSTEOPOROSIS POSTMENOPAUSAL
     Dosage: UNK UNK, Q6MO
     Route: 065

REACTIONS (9)
  - Death [Fatal]
  - Fall [Unknown]
  - Pain in extremity [Unknown]
  - Pneumonia [Unknown]
  - Hip fracture [Unknown]
  - Aneurysm [Unknown]
  - Hospice care [Unknown]
  - Hemiplegia [Unknown]
  - Humerus fracture [Unknown]

NARRATIVE: CASE EVENT DATE: 2017
